FAERS Safety Report 6321108-X (Version None)
Quarter: 2009Q3

REPORT INFORMATION
  Report Type: 
  Country: None (occurrence: None)
  Receive Date: 20090822
  Receipt Date: 20081231
  Transmission Date: 20100115
  Serious: No
  Sender: FDA-Public Use
  Company Number: US-ABBOTT-09P-163-0495627-00

PATIENT
  Sex: Male
  Weight: 106.69 kg

DRUGS (4)
  1. NIASPAN [Suspect]
     Indication: BLOOD CHOLESTEROL INCREASED
     Route: 048
     Dates: start: 20080301
  2. NIASPAN [Suspect]
     Indication: BLOOD TRIGLYCERIDES INCREASED
  3. COREG [Concomitant]
     Indication: DRUG USE FOR UNKNOWN INDICATION
     Dosage: QD
     Route: 048
  4. PROPECIA [Concomitant]
     Indication: ALOPECIA
     Dosage: QD
     Route: 048

REACTIONS (2)
  - MYALGIA [None]
  - PAIN IN EXTREMITY [None]
